FAERS Safety Report 8770844 (Version 1)
Quarter: 2012Q4

REPORT INFORMATION
  Report Type: Report from Study
  Country: US (occurrence: US)
  Receive Date: 20120906
  Receipt Date: 20120906
  Transmission Date: 20130627
  Serious: Yes (Other)
  Sender: FDA-Public Use
  Company Number: US-CELGENEUS-163-C5013-12083270

PATIENT
  Age: 76 Year
  Sex: Male
  Weight: 98.2 kg

DRUGS (2)
  1. CC-5013 [Suspect]
     Indication: CLL
     Dosage: 2.5 Milligram
     Route: 048
     Dates: start: 20120328
  2. CC-5013 [Suspect]
     Dosage: 2.5 Milligram
     Route: 048
     Dates: start: 20120814

REACTIONS (1)
  - Basal cell carcinoma [Recovered/Resolved]
